FAERS Safety Report 10473811 (Version 4)
Quarter: 2015Q1

REPORT INFORMATION
  Report Type: Spontaneous
  Country: US (occurrence: US)
  Receive Date: 20140924
  Receipt Date: 20150112
  Transmission Date: 20150720
  Serious: Yes (Life-Threatening, Hospitalization, Other)
  Sender: FDA-Public Use
  Company Number: US-009507513-1409USA011190

PATIENT
  Sex: Female
  Weight: 67.12 kg

DRUGS (1)
  1. JANUVIA [Suspect]
     Active Substance: SITAGLIPTIN PHOSPHATE
     Indication: TYPE 2 DIABETES MELLITUS
     Dosage: 50 MG, QD
     Route: 048
     Dates: start: 20111130, end: 20140620

REACTIONS (29)
  - Bile duct obstruction [Unknown]
  - International normalised ratio increased [Recovered/Resolved]
  - Hysterectomy [Unknown]
  - Musculoskeletal pain [Not Recovered/Not Resolved]
  - Upper respiratory tract infection [Unknown]
  - Gastroenteritis viral [Recovering/Resolving]
  - Helicobacter test positive [Unknown]
  - Urinary tract infection [Recovered/Resolved]
  - Urinary tract infection [Unknown]
  - Bile duct stent insertion [Unknown]
  - Pancreatobiliary sphincterotomy [Unknown]
  - Pancreaticoduodenectomy [Unknown]
  - Laparoscopy [Unknown]
  - Knee arthroplasty [Unknown]
  - Hypotension [Recovered/Resolved]
  - Atrial fibrillation [Unknown]
  - Respiratory tract congestion [Unknown]
  - Peripheral vascular disorder [Unknown]
  - Adenocarcinoma pancreas [Unknown]
  - Cholecystostomy [Unknown]
  - Glaucoma [Unknown]
  - Diabetic neuropathy [Unknown]
  - Type 1 diabetes mellitus [Unknown]
  - Arthritis [Unknown]
  - Hypertension [Unknown]
  - Thrombophlebitis superficial [Recovering/Resolving]
  - Mitral valve incompetence [Unknown]
  - Depression [Unknown]
  - Lyme disease [Unknown]

NARRATIVE: CASE EVENT DATE: 201204
